FAERS Safety Report 14418986 (Version 1)
Quarter: 2018Q1

REPORT INFORMATION
  Report Type: Spontaneous
  Country: CA (occurrence: CA)
  Receive Date: 20180122
  Receipt Date: 20180122
  Transmission Date: 20180509
  Serious: Yes (Hospitalization)
  Sender: FDA-Public Use
  Company Number: CA-BAXTER-2018BAX002030

PATIENT
  Sex: Male

DRUGS (3)
  1. EXTRANEAL [Suspect]
     Active Substance: CALCIUM CHLORIDE\ICODEXTRIN\MAGNESIUM CHLORIDE\SODIUM CHLORIDE\SODIUM LACTATE
     Indication: RENAL FAILURE
     Dosage: 2.5 UNITS ONE BAG PER DAY
     Route: 033
  2. EXTRANEAL [Suspect]
     Active Substance: CALCIUM CHLORIDE\ICODEXTRIN\MAGNESIUM CHLORIDE\SODIUM CHLORIDE\SODIUM LACTATE
     Indication: PERITONEAL DIALYSIS
  3. CYCLOBENZAPRINE. [Suspect]
     Active Substance: CYCLOBENZAPRINE
     Indication: MUSCLE SPASMS
     Route: 065
     Dates: start: 20180102, end: 20180103

REACTIONS (3)
  - Muscle spasms [Unknown]
  - Hallucination [Recovered/Resolved]
  - Feeling abnormal [Unknown]

NARRATIVE: CASE EVENT DATE: 201801
